FAERS Safety Report 16330809 (Version 1)
Quarter: 2019Q2

REPORT INFORMATION
  Report Type: Spontaneous
  Country: US (occurrence: US)
  Receive Date: 20190517
  Receipt Date: 20190517
  Transmission Date: 20190711
  Serious: Yes (Other)
  Sender: FDA-Public Use
  Company Number: None

PATIENT
  Age: 72 Year
  Sex: Male
  Weight: 83.7 kg

DRUGS (13)
  1. FAMOTIDINE. [Concomitant]
     Active Substance: FAMOTIDINE
     Dates: start: 20190208, end: 20190219
  2. POTASSIUM PHOSPHATE [Concomitant]
     Active Substance: POTASSIUM PHOSPHATE
     Dates: start: 20190211, end: 20190214
  3. ALBUTEROL. [Concomitant]
     Active Substance: ALBUTEROL
     Dates: start: 20190211, end: 20190225
  4. AMPICILLIN [Concomitant]
     Active Substance: AMPICILLIN
     Dates: start: 20190211, end: 20190213
  5. AMIODARONE [Concomitant]
     Active Substance: AMIODARONE
     Dates: start: 20190210, end: 20190212
  6. INSULIN LISPRO [Concomitant]
     Active Substance: INSULIN LISPRO
     Dates: start: 20190208, end: 20190220
  7. BISACODYL. [Concomitant]
     Active Substance: BISACODYL
     Dates: start: 20190211, end: 20190220
  8. FENTANYL. [Suspect]
     Active Substance: FENTANYL
     Indication: SEDATION
     Dosage: ?          OTHER FREQUENCY:CONTINUOUS;?
     Route: 041
     Dates: start: 20190208, end: 20190212
  9. LORAZEPAM. [Concomitant]
     Active Substance: LORAZEPAM
     Dates: start: 20190212, end: 20190212
  10. QUETIAPINE. [Suspect]
     Active Substance: QUETIAPINE
     Indication: AGITATION
     Dosage: ?          OTHER FREQUENCY:ONCE;?
     Route: 048
     Dates: start: 20190212, end: 20190212
  11. ACETAMINOPHEN. [Concomitant]
     Active Substance: ACETAMINOPHEN
     Dates: start: 20190208, end: 20190220
  12. HEPARIN [Concomitant]
     Active Substance: HEPARIN SODIUM
     Dates: start: 20190211, end: 20190221
  13. PRISMASATE CRRT SOLUTION [Concomitant]
     Dates: start: 20190210, end: 20190218

REACTIONS (3)
  - Serotonin syndrome [None]
  - Clonus [None]
  - Female sexual arousal disorder [None]

NARRATIVE: CASE EVENT DATE: 20190212
